FAERS Safety Report 21221047 (Version 3)
Quarter: 2022Q4

REPORT INFORMATION
  Report Type: Spontaneous
  Country: US (occurrence: US)
  Receive Date: 20220817
  Receipt Date: 20221210
  Transmission Date: 20230113
  Serious: Yes (Other)
  Sender: FDA-Public Use
  Company Number: US-BRISTOL-MYERS SQUIBB COMPANY-2022-087873

PATIENT
  Age: 72 Year
  Sex: Female

DRUGS (5)
  1. ORENCIA [Suspect]
     Active Substance: ABATACEPT
     Indication: Rheumatoid arthritis
     Dosage: DOSE : 1000 MG;     FREQ : EVERY 4 WEEKS?ROUTE- INFUSION
     Route: 065
     Dates: start: 202203, end: 202207
  2. LEFLUNOMIDE [Concomitant]
     Active Substance: LEFLUNOMIDE
     Indication: Product used for unknown indication
     Route: 065
  3. OXYCODONE [Concomitant]
     Active Substance: OXYCODONE
     Indication: Product used for unknown indication
     Route: 065
  4. ALLOPURINOL [Concomitant]
     Active Substance: ALLOPURINOL
     Indication: Product used for unknown indication
     Route: 065
  5. LOSARTAN [Concomitant]
     Active Substance: LOSARTAN

REACTIONS (7)
  - Cellulitis [Unknown]
  - Gingivitis [Unknown]
  - Hypotension [Unknown]
  - Tooth loss [Unknown]
  - Gait disturbance [Unknown]
  - Malaise [Unknown]
  - Amnesia [Unknown]
